FAERS Safety Report 21270718 (Version 2)
Quarter: 2022Q3

REPORT INFORMATION
  Report Type: Report from Study
  Country: FR (occurrence: FR)
  Receive Date: 20220830
  Receipt Date: 20220906
  Transmission Date: 20221027
  Serious: Yes (Other)
  Sender: FDA-Public Use
  Company Number: FR-BRISTOL-MYERS SQUIBB COMPANY-2022-096232

PATIENT
  Age: 74 Year
  Sex: Female

DRUGS (4)
  1. NIVOLUMAB [Suspect]
     Active Substance: NIVOLUMAB
     Indication: Renal cell carcinoma
     Route: 042
     Dates: start: 20220622, end: 20220803
  2. NIVOLUMAB [Suspect]
     Active Substance: NIVOLUMAB
     Dosage: THERAPY START DATE: 10-AUG-2022
     Route: 042
     Dates: start: 20220810
  3. IPILIMUMAB [Suspect]
     Active Substance: IPILIMUMAB
     Indication: Renal cell carcinoma
     Route: 042
     Dates: start: 20220622, end: 20220803
  4. IPILIMUMAB [Suspect]
     Active Substance: IPILIMUMAB
     Dosage: THERAPY START DATE: 10-AUG-2022
     Route: 042
     Dates: start: 20220810

REACTIONS (2)
  - Cholestasis [Recovering/Resolving]
  - Cell death [Recovering/Resolving]

NARRATIVE: CASE EVENT DATE: 20220803
